FAERS Safety Report 8531259-7 (Version None)
Quarter: 2012Q3

REPORT INFORMATION
  Report Type: 
  Country: None (occurrence: None)
  Receive Date: 20120723
  Receipt Date: 20120710
  Transmission Date: 20120928
  Serious: Yes (Hospitalization)
  Sender: FDA-Public Use
  Company Number: ES-UCBSA-061880

PATIENT
  Age: 31 Year
  Sex: Male

DRUGS (4)
  1. LEVETIRACETAM [Suspect]
     Indication: GRAND MAL CONVULSION
     Route: 048
  2. DEXAMETHASONE [Suspect]
     Dosage: DAILY DOSE: 4 MG
  3. DEXAMETHASONE [Suspect]
     Dosage: DAILY DOSE: 6 MG
  4. DEXAMETHASONE [Suspect]
     Dosage: 12 MG DAILY TAPERED DOWN TO 2 MG DAILY

REACTIONS (1)
  - DRUG RASH WITH EOSINOPHILIA AND SYSTEMIC SYMPTOMS [None]
